FAERS Safety Report 9268157 (Version 2)
Quarter: 2014Q2

REPORT INFORMATION
  Report Type: Report from Study
  Country: US (occurrence: US)
  Receive Date: 20130502
  Receipt Date: 20140407
  Transmission Date: 20141212
  Serious: No
  Sender: FDA-Public Use
  Company Number: US-ALEXION-A201202150

PATIENT
  Sex: 0

DRUGS (3)
  1. SOLIRIS [Suspect]
     Indication: PAROXYSMAL NOCTURNAL HAEMOGLOBINURIA
     Dosage: 1200 MG, Q2W
     Route: 042
     Dates: start: 20100903
  2. SOLIRIS [Suspect]
     Dosage: 900 MG - 1200 MG
     Route: 042
     Dates: start: 201212, end: 20140103
  3. SOLIRIS [Suspect]
     Dosage: 1200 MG, UNK
     Route: 042

REACTIONS (3)
  - Conjunctivitis [Unknown]
  - Abdominal hernia [Unknown]
  - Migraine [Recovered/Resolved]
